FAERS Safety Report 12486469 (Version 3)
Quarter: 2017Q1

REPORT INFORMATION
  Report Type: Spontaneous
  Country: NO (occurrence: NO)
  Receive Date: 20160621
  Receipt Date: 20170102
  Transmission Date: 20170428
  Serious: Yes (Other)
  Sender: FDA-Public Use
  Company Number: NO-ALLERGAN-1660503US

PATIENT
  Age: 67 Year
  Sex: Male

DRUGS (2)
  1. OZURDEX [Suspect]
     Active Substance: DEXAMETHASONE
     Dosage: 0.7 MG, SINGLE
     Route: 031
     Dates: start: 201206, end: 201206
  2. OZURDEX [Suspect]
     Active Substance: DEXAMETHASONE
     Indication: UVEITIS
     Dosage: 0.7 MG, SINGLE
     Route: 031
     Dates: start: 201205, end: 201205

REACTIONS (14)
  - Retinal pigmentation [Unknown]
  - Anterior chamber angle neovascularisation [Not Recovered/Not Resolved]
  - Off label use [Unknown]
  - Retinal vasculitis [Unknown]
  - Cytomegalovirus chorioretinitis [Unknown]
  - Retinal detachment [Unknown]
  - Ciliary body disorder [Unknown]
  - Hypotony of eye [Not Recovered/Not Resolved]
  - Iris neovascularisation [Unknown]
  - Iris haemorrhage [Recovering/Resolving]
  - Corneal deposits [Recovering/Resolving]
  - Necrotising retinitis [Recovering/Resolving]
  - Visual field defect [Unknown]
  - Epstein-Barr virus infection [Recovering/Resolving]
